FAERS Safety Report 4489098-2 (Version None)
Quarter: 2004Q4

REPORT INFORMATION
  Report Type: 
  Country: None (occurrence: None)
  Receive Date: 20041029
  Receipt Date: 20041018
  Transmission Date: 20050328
  Serious: Yes (Hospitalization)
  Sender: FDA-Public Use
  Company Number: ZA-ROCHE-383456

PATIENT
  Age: 21 Year
  Weight: 43 kg

DRUGS (1)
  1. ROACCUTANE [Suspect]
     Indication: ACNE
     Route: 048
     Dates: start: 20040424, end: 20040606

REACTIONS (4)
  - CONVULSION [None]
  - HEADACHE [None]
  - NODDING OF HEAD [None]
  - PSYCHOTIC DISORDER [None]
